FAERS Safety Report 8180989-8 (Version None)
Quarter: 2012Q1

REPORT INFORMATION
  Report Type: 
  Country: None (occurrence: None)
  Receive Date: 20120302
  Receipt Date: 20120222
  Transmission Date: 20120608
  Serious: Yes (Life-Threatening, Hospitalization, Other)
  Sender: FDA-Public Use
  Company Number: ES-CELGENEUS-144-50794-12013217

PATIENT
  Sex: Male
  Weight: 62 kg

DRUGS (9)
  1. AMOXICILLIN PLUS CLAVULANIC ACID [Concomitant]
     Route: 065
     Dates: start: 20090602, end: 20090617
  2. ATENOLOL [Concomitant]
     Indication: CARDIOMYOPATHY
  3. DIGOXIN [Concomitant]
     Indication: CARDIOMYOPATHY
     Route: 065
  4. ATENOLOL [Concomitant]
     Indication: HYPERTHYROIDISM
     Route: 065
  5. ENOXAPARIN [Concomitant]
     Indication: ATRIAL FLUTTER
     Route: 065
     Dates: start: 20090326
  6. AMIODARONE HCL [Concomitant]
     Indication: ATRIAL FLUTTER
     Route: 065
  7. AMOXICILLIN PLUS CLAVULANIC ACID [Concomitant]
     Indication: FEBRILE NEUTROPENIA
     Route: 065
     Dates: start: 20090623, end: 20090629
  8. FINASTERIDE [Concomitant]
     Route: 065
     Dates: start: 20080101
  9. VIDAZA [Suspect]
     Indication: ACUTE MYELOID LEUKAEMIA
     Dosage: 75 MILLIGRAM/SQ. METER
     Dates: start: 20060601, end: 20090609

REACTIONS (1)
  - FEBRILE NEUTROPENIA [None]
